FAERS Safety Report 7346352-4 (Version None)
Quarter: 2011Q1

REPORT INFORMATION
  Report Type: 
  Country: None (occurrence: None)
  Receive Date: 20110225
  Receipt Date: 20110111
  Transmission Date: 20110831
  Serious: No
  Sender: FDA-Public Use
  Company Number: 321575

PATIENT
  Age: 79 Year
  Sex: Male

DRUGS (1)
  1. VICTOZA [Suspect]
     Indication: TYPE 2 DIABETES MELLITUS
     Dosage: 1.2 MG, QD, SUBCUTANEOUS
     Route: 058

REACTIONS (1)
  - DIABETES MELLITUS INADEQUATE CONTROL [None]
